FAERS Safety Report 8820012 (Version 1)
Quarter: 2012Q4

REPORT INFORMATION
  Report Type: 
  Country: US (occurrence: US)
  Receive Date: 20121001
  Receipt Date: 20121001
  Transmission Date: 20130627
  Serious: No
  Sender: FDA-Public Use
  Company Number: US-VERTEX PHARMACEUTICAL INC.-2012-020466

PATIENT
  Sex: Male
  Weight: 77.98 kg

DRUGS (3)
  1. VX-950 [Suspect]
     Indication: HEPATITIS C
     Dosage: 750 mg, tid
     Dates: start: 20120217, end: 20120318
  2. RIBAVIRIN [Concomitant]
     Indication: HEPATITIS C
     Dosage: 1 DF, bid
     Dates: start: 20120217, end: 20120318
  3. PEGINTERFERON ALFA [Concomitant]
     Indication: HEPATITIS C
     Dosage: UNK
     Dates: start: 20120217, end: 20120318

REACTIONS (1)
  - Depression [Unknown]
